FAERS Safety Report 12681552 (Version 1)
Quarter: 2016Q3

REPORT INFORMATION
  Report Type: Report from Study
  Country: US (occurrence: US)
  Receive Date: 20160824
  Receipt Date: 20160824
  Transmission Date: 20161109
  Serious: Yes (Other)
  Sender: FDA-Public Use
  Company Number: US-ABBVIE-16K-163-1704379-00

PATIENT
  Sex: Female

DRUGS (2)
  1. HUMIRA [Suspect]
     Active Substance: ADALIMUMAB
     Route: 058
     Dates: start: 201608
  2. HUMIRA [Suspect]
     Active Substance: ADALIMUMAB
     Indication: CROHN^S DISEASE
     Route: 058
     Dates: start: 2012, end: 2014

REACTIONS (4)
  - Intestinal obstruction [Recovered/Resolved]
  - Abdominal pain lower [Not Recovered/Not Resolved]
  - Crohn^s disease [Recovered/Resolved]
  - Postoperative hernia [Recovered/Resolved]

NARRATIVE: CASE EVENT DATE: 2014
